FAERS Safety Report 5825127-9 (Version None)
Quarter: 2008Q3

REPORT INFORMATION
  Report Type: 
  Country: None (occurrence: None)
  Receive Date: 20080725
  Receipt Date: 20080725
  Transmission Date: 20090109
  Serious: Yes (Hospitalization)
  Sender: FDA-Public Use
  Company Number: None

PATIENT
  Age: 21 Year
  Sex: Male
  Weight: 98 kg

DRUGS (2)
  1. VANCOMYCIN [Suspect]
     Indication: ABSCESS NECK
     Dosage: 1750MG Q12HR
     Dates: start: 20080527, end: 20080603
  2. VANCOMYCIN [Suspect]
     Indication: CELLULITIS
     Dosage: 1750MG Q12HR
     Dates: start: 20080527, end: 20080603

REACTIONS (2)
  - BLOOD CREATININE ABNORMAL [None]
  - DIALYSIS [None]
